FAERS Safety Report 5563899-1 (Version None)
Quarter: 2007Q4

REPORT INFORMATION
  Report Type: 
  Country: None (occurrence: None)
  Receive Date: 20071217
  Receipt Date: 20071003
  Transmission Date: 20080405
  Serious: No
  Sender: FDA-Public Use
  Company Number: US-ASTRAZENECA-2007UW23040

PATIENT
  Age: 70 Year
  Sex: Female
  Weight: 72.6 kg

DRUGS (2)
  1. CRESTOR [Suspect]
     Indication: HYPERCHOLESTEROLAEMIA
     Route: 048
     Dates: start: 20070901
  2. ZIAC [Concomitant]

REACTIONS (2)
  - ABDOMINAL DISTENSION [None]
  - ERUCTATION [None]
